FAERS Safety Report 6148194-4 (Version None)
Quarter: 2009Q2

REPORT INFORMATION
  Report Type: 
  Country: None (occurrence: None)
  Receive Date: 20090406
  Receipt Date: 20090320
  Transmission Date: 20091009
  Serious: Yes (Other)
  Sender: FDA-Public Use
  Company Number: B0567576A

PATIENT
  Age: 5 Month
  Sex: Female

DRUGS (3)
  1. BUSULPHAN (FORMULATION UNKNOWN) (GENERIC) (BUSULFAN) [Suspect]
     Indication: STEM CELL TRANSPLANT
  2. CYCLOPHOSPHAMIDE [Suspect]
     Indication: STEM CELL TRANSPLANT
  3. CYCLOSPORINE [Suspect]
     Indication: PROPHYLAXIS AGAINST TRANSPLANT REJECTION

REACTIONS (4)
  - AUTOIMMUNE THYROIDITIS [None]
  - BLOOD STEM CELL TRANSPLANT FAILURE [None]
  - GRAFT VERSUS HOST DISEASE [None]
  - HYPOTHYROIDISM [None]
